FAERS Safety Report 4529400-6 (Version None)
Quarter: 2004Q4

REPORT INFORMATION
  Report Type: 
  Country: None (occurrence: None)
  Receive Date: 20041216
  Receipt Date: 20041117
  Transmission Date: 20050328
  Serious: Yes (Death)
  Sender: FDA-Public Use
  Company Number: 6011684

PATIENT
  Age: 74 Year
  Sex: Female

DRUGS (3)
  1. ENALAPRIL GENERICS (TABLETS) (ENALAPRIL) [Suspect]
     Indication: CARDIAC FAILURE CONGESTIVE
     Dosage: ORAL
     Route: 048
     Dates: start: 20040105
  2. ENALAPRIL GENERICS (TABLETS) (ENALAPRIL) [Suspect]
     Indication: DRUG USE FOR UNKNOWN INDICATION
     Dosage: ORAL
     Route: 048
     Dates: start: 20040105
  3. ... [Concomitant]

REACTIONS (1)
  - DEATH [None]
